FAERS Safety Report 21575474 (Version 2)
Quarter: 2023Q1

REPORT INFORMATION
  Report Type: Report from Study
  Country: US (occurrence: US)
  Receive Date: 20221110
  Receipt Date: 20230110
  Transmission Date: 20230417
  Serious: Yes (Other)
  Sender: FDA-Public Use
  Company Number: US-002147023-NVSC2022US250798

PATIENT
  Age: 25 Year
  Sex: Female

DRUGS (1)
  1. KESIMPTA [Suspect]
     Active Substance: OFATUMUMAB
     Indication: Multiple sclerosis
     Dosage: 20 MG, QMO (VIAL)
     Route: 058
     Dates: start: 20221104

REACTIONS (9)
  - Influenza like illness [Recovering/Resolving]
  - Pyrexia [Not Recovered/Not Resolved]
  - Chills [Unknown]
  - Vision blurred [Unknown]
  - Migraine [Unknown]
  - Hypoaesthesia [Unknown]
  - Chest discomfort [Unknown]
  - Headache [Unknown]
  - Fatigue [Unknown]

NARRATIVE: CASE EVENT DATE: 20221104
